FAERS Safety Report 5120998-6 (Version None)
Quarter: 2006Q4

REPORT INFORMATION
  Report Type: 
  Country: None (occurrence: None)
  Receive Date: 20061005
  Receipt Date: 20060922
  Transmission Date: 20070319
  Serious: Yes (Other)
  Sender: FDA-Public Use
  Company Number: PHNU2006DE03230

PATIENT
  Sex: Female

DRUGS (1)
  1. ZOMETA [Suspect]
     Indication: MULTIPLE MYELOMA
     Dates: start: 20020101, end: 20060101

REACTIONS (5)
  - LOOSE TOOTH [None]
  - ORAL PAIN [None]
  - PROSTHESIS IMPLANTATION [None]
  - PURULENCE [None]
  - TOOTH EXTRACTION [None]
